FAERS Safety Report 6384664-1 (Version None)
Quarter: 2009Q4

REPORT INFORMATION
  Report Type: 
  Country: None (occurrence: None)
  Receive Date: 20091001
  Receipt Date: 20090929
  Transmission Date: 20100525
  Serious: Yes (Death, Hospitalization)
  Sender: FDA-Public Use
  Company Number: PHEH2009US11628

PATIENT
  Sex: Male
  Weight: 59.3 kg

DRUGS (10)
  1. EXJADE [Suspect]
     Indication: MYELODYSPLASTIC SYNDROME
     Dosage: 1125 MG DAILY
     Route: 048
     Dates: start: 20090401
  2. EXJADE [Suspect]
     Indication: HAEMOSIDEROSIS
  3. VITAMIN D [Concomitant]
  4. GLIPIZIDE [Concomitant]
     Dosage: 10 MG, BID
  5. COZAAR [Concomitant]
     Dosage: 25 MG, QD
  6. METFORMIN [Concomitant]
  7. BYSTOLIC [Concomitant]
     Dosage: 2.5 MG, QD
  8. LASIX [Concomitant]
     Dosage: 40 MG, QD
  9. POTASSIUM CHLORIDE [Concomitant]
     Dosage: 20 MEQ, BID
  10. TRAZODONE [Concomitant]
     Dosage: 50 MG, QHS

REACTIONS (8)
  - ACUTE RESPIRATORY FAILURE [None]
  - CARDIAC FAILURE CONGESTIVE [None]
  - DIABETES MELLITUS [None]
  - EPISTAXIS [None]
  - FLUID OVERLOAD [None]
  - MALIGNANT NEOPLASM PROGRESSION [None]
  - PNEUMONIA [None]
  - THROMBOCYTOPENIA [None]
